FAERS Safety Report 12158004 (Version 1)
Quarter: 2016Q1

REPORT INFORMATION
  Report Type: Spontaneous
  Country: US (occurrence: None)
  Receive Date: 20160307
  Receipt Date: 20160307
  Transmission Date: 20160526
  Serious: Yes (Hospitalization, Disabling, Other)
  Sender: FDA-Public Use
  Company Number: None

PATIENT
  Age: 40 Year
  Sex: Female
  Weight: 58.97 kg

DRUGS (30)
  1. METFORMIN [Concomitant]
     Active Substance: METFORMIN HYDROCHLORIDE
  2. EVOLAC [Concomitant]
  3. MAXALT [Concomitant]
     Active Substance: RIZATRIPTAN BENZOATE
  4. VITAMIN B12 [Concomitant]
     Active Substance: CYANOCOBALAMIN
  5. DAILY VITAMIN [Concomitant]
     Active Substance: VITAMINS
  6. BACLOFEN. [Concomitant]
     Active Substance: BACLOFEN
  7. MORPHINE SULPHATE [Concomitant]
     Active Substance: MORPHINE SULFATE
  8. PROGESTERONE. [Concomitant]
     Active Substance: PROGESTERONE
  9. EXFUZE PRODUCTS (LIQUID VITAMINS) [Concomitant]
  10. MELATONIN [Concomitant]
     Active Substance: MELATONIN
  11. PREDNISONE. [Concomitant]
     Active Substance: PREDNISONE
  12. KLOR-CON [Concomitant]
     Active Substance: POTASSIUM CHLORIDE
  13. PLAQUNINAL [Concomitant]
  14. PROVENTIL RESCUE INHALER [Concomitant]
  15. MASSAGE [Concomitant]
  16. NITROSTAT [Concomitant]
     Active Substance: NITROGLYCERIN
  17. ULTRAM [Concomitant]
     Active Substance: TRAMADOL HYDROCHLORIDE
  18. ALBUTEROL. [Concomitant]
     Active Substance: ALBUTEROL
  19. ZOFRAN [Concomitant]
     Active Substance: ONDANSETRON HYDROCHLORIDE
  20. IODINE [Concomitant]
     Active Substance: IODINE
  21. JUSURU BIO CELL ^LIFE^ [Concomitant]
  22. ENBREL [Suspect]
     Active Substance: ETANERCEPT
     Indication: RHEUMATOID ARTHRITIS
     Dosage: 1 1 SHOT INTO THE MUSCLE
     Route: 030
     Dates: start: 20160224, end: 20160224
  23. LASIX [Concomitant]
     Active Substance: FUROSEMIDE
  24. GABAPENTIN. [Concomitant]
     Active Substance: GABAPENTIN
  25. METHOTREXATE [Concomitant]
     Active Substance: METHOTREXATE
  26. TOPICALS [Concomitant]
  27. PT [Concomitant]
  28. ACUPRESSURE [Concomitant]
  29. VANCOMYCIN [Concomitant]
     Active Substance: VANCOMYCIN
  30. ASPIRIN. [Concomitant]
     Active Substance: ASPIRIN

REACTIONS (18)
  - Pyrexia [None]
  - Eye infection [None]
  - Fine motor skill dysfunction [None]
  - Haematemesis [None]
  - Feeding disorder [None]
  - Speech disorder [None]
  - Abnormal dreams [None]
  - Nausea [None]
  - Confusional state [None]
  - Pain [None]
  - Neuralgia [None]
  - Visual impairment [None]
  - Blood glucose decreased [None]
  - Dysphagia [None]
  - Tremor [None]
  - Altered visual depth perception [None]
  - Contusion [None]
  - Headache [None]

NARRATIVE: CASE EVENT DATE: 20160224
